FAERS Safety Report 23702127 (Version 1)
Quarter: 2024Q2

REPORT INFORMATION
  Report Type: Spontaneous
  Country: US (occurrence: None)
  Receive Date: 20240403
  Receipt Date: 20240403
  Transmission Date: 20240716
  Serious: Yes (Life-Threatening, Hospitalization, Disabling, Other)
  Sender: FDA-Public Use
  Company Number: None

PATIENT
  Age: 87 Year
  Sex: Female
  Weight: 67.5 kg

DRUGS (1)
  1. PROLIA [Suspect]
     Active Substance: DENOSUMAB
     Indication: Osteoporosis

REACTIONS (20)
  - Fall [None]
  - Femur fracture [None]
  - Stress [None]
  - Polymyalgia rheumatica [None]
  - Delirium [None]
  - Spinal compression fracture [None]
  - Lumbar vertebral fracture [None]
  - Lumbar vertebral fracture [None]
  - Lumbar vertebral fracture [None]
  - Lumbar vertebral fracture [None]
  - Blood calcium increased [None]
  - Confusional state [None]
  - Cognitive disorder [None]
  - Osteoporosis [None]
  - Condition aggravated [None]
  - Paradoxical drug reaction [None]
  - Product complaint [None]
  - Arthralgia [None]
  - Groin pain [None]
  - Back pain [None]

NARRATIVE: CASE EVENT DATE: 20230901
